FAERS Safety Report 13167561 (Version 1)
Quarter: 2017Q1

REPORT INFORMATION
  Report Type: Spontaneous
  Country: US (occurrence: US)
  Receive Date: 20170131
  Receipt Date: 20170131
  Transmission Date: 20170428
  Serious: No
  Sender: FDA-Public Use
  Company Number: US-PFIZER INC-2017040572

PATIENT
  Sex: Male

DRUGS (1)
  1. XELJANZ XR [Suspect]
     Active Substance: TOFACITINIB CITRATE
     Dosage: 11 MG, DAILY

REACTIONS (7)
  - Spinal disorder [Unknown]
  - Myalgia [Unknown]
  - Tenderness [Unknown]
  - Arthropathy [Unknown]
  - Oedema peripheral [Unknown]
  - Movement disorder [Unknown]
  - Arthralgia [Unknown]
